FAERS Safety Report 19427747 (Version 2)
Quarter: 2021Q2

REPORT INFORMATION
  Report Type: Spontaneous
  Country: US (occurrence: US)
  Receive Date: 20210617
  Receipt Date: 20210630
  Transmission Date: 20210717
  Serious: No
  Sender: FDA-Public Use
  Company Number: US-JNJFOC-20210614296

PATIENT
  Age: 50 Year
  Sex: Male
  Weight: 77.18 kg

DRUGS (1)
  1. MENS ROGAINE EXTRA STRENGTH [Suspect]
     Active Substance: MINOXIDIL
     Indication: ALOPECIA
     Dosage: DOSE: AS DIRECTED, 1 ML IN THE DROPPER?PRODUCT STOP DATE: 06?JUN?2021
     Route: 061
     Dates: start: 20200907

REACTIONS (2)
  - Drug ineffective [Unknown]
  - Suspected product tampering [Unknown]
